FAERS Safety Report 9855653 (Version 3)
Quarter: 2014Q1

REPORT INFORMATION
  Report Type: Spontaneous
  Country: JP (occurrence: JP)
  Receive Date: 20140130
  Receipt Date: 20140304
  Transmission Date: 20141002
  Serious: Yes (Hospitalization, Other)
  Sender: FDA-Public Use
  Company Number: PHHY2014JP002723

PATIENT
  Sex: Male

DRUGS (3)
  1. DIOVAN [Suspect]
     Indication: HYPERTENSION
     Dosage: 80 MG, DAILY
     Route: 048
  2. DIOVAN [Suspect]
     Dosage: 40 MG, DAILY, (HALF TABLET OF 80 MG)
     Route: 048
  3. CONIEL [Concomitant]
     Dosage: UNK
     Route: 048

REACTIONS (3)
  - Prostate cancer [Unknown]
  - Hypotension [Recovered/Resolved]
  - Wrong technique in drug usage process [Unknown]
